FAERS Safety Report 18426571 (Version 1)
Quarter: 2020Q4

REPORT INFORMATION
  Report Type: Spontaneous
  Country: US (occurrence: US)
  Receive Date: 20201026
  Receipt Date: 20201026
  Transmission Date: 20210114
  Serious: Yes (Other)
  Sender: FDA-Public Use
  Company Number: None

PATIENT
  Age: 69 Year
  Sex: Female
  Weight: 66.3 kg

DRUGS (2)
  1. ETOMIDATE. [Suspect]
     Active Substance: ETOMIDATE
     Indication: TACHYCARDIA
     Dosage: ?          OTHER FREQUENCY:ONE TIME;?
     Route: 040
     Dates: start: 20201020, end: 20201020
  2. ETOMIDATE. [Suspect]
     Active Substance: ETOMIDATE
     Indication: DYSPNOEA
     Dosage: ?          OTHER FREQUENCY:ONE TIME;?
     Route: 040
     Dates: start: 20201020, end: 20201020

REACTIONS (3)
  - Product quality issue [None]
  - Drug ineffective [None]
  - Endotracheal intubation [None]

NARRATIVE: CASE EVENT DATE: 20201020
